FAERS Safety Report 10198097 (Version 1)
Quarter: 2014Q2

REPORT INFORMATION
  Report Type: Spontaneous
  Country: IE (occurrence: IE)
  Receive Date: 20140527
  Receipt Date: 20140527
  Transmission Date: 20141212
  Serious: Yes (Life-Threatening, Hospitalization)
  Sender: FDA-Public Use
  Company Number: IE-WATSON-2014-11160

PATIENT
  Age: 33 Year
  Sex: Male

DRUGS (3)
  1. PREDNISOLONE (UNKNOWN) [Suspect]
     Indication: BEHCET^S SYNDROME
     Dosage: 60 MG, UNK
  2. AZATHIOPRINE [Concomitant]
     Indication: BEHCET^S SYNDROME
     Dosage: 100 MG, UNK
     Route: 065
  3. WARFARIN [Concomitant]
     Indication: DEEP VEIN THROMBOSIS
     Dosage: UNKNOWN
     Route: 065

REACTIONS (1)
  - Streptococcal sepsis [Recovered/Resolved]
